FAERS Safety Report 20470626 (Version 1)
Quarter: 2022Q1

REPORT INFORMATION
  Report Type: Spontaneous
  Country: NL (occurrence: NL)
  Receive Date: 20220214
  Receipt Date: 20220214
  Transmission Date: 20220423
  Serious: Yes (Other)
  Sender: FDA-Public Use
  Company Number: NL-AMGEN-NLDSP2022020705

PATIENT
  Age: 27 Year
  Sex: Male

DRUGS (6)
  1. ADALIMUMAB [Suspect]
     Active Substance: ADALIMUMAB
     Indication: Hidradenitis
     Dosage: UNK
     Route: 065
  2. HUMAN IMMUNOGLOBULIN G [Concomitant]
     Active Substance: HUMAN IMMUNOGLOBULIN G
  3. CIPROFLOXACIN [Concomitant]
     Active Substance: CIPROFLOXACIN
  4. RITUXAN [Concomitant]
     Active Substance: RITUXIMAB
  5. TICAGRELOR [Concomitant]
     Active Substance: TICAGRELOR
  6. ANAKINRA [Concomitant]
     Active Substance: ANAKINRA

REACTIONS (4)
  - Paravalvular regurgitation [Unknown]
  - Endocarditis noninfective [Unknown]
  - Transient ischaemic attack [Unknown]
  - Antiphospholipid syndrome [Unknown]
